FAERS Safety Report 12859494 (Version 3)
Quarter: 2016Q4

REPORT INFORMATION
  Report Type: Spontaneous
  Country: US (occurrence: US)
  Receive Date: 20161018
  Receipt Date: 20161028
  Transmission Date: 20170207
  Serious: Yes (Hospitalization, Other)
  Sender: FDA-Public Use
  Company Number: US-CELGENEUS-USA-2016103811

PATIENT
  Age: 72 Year
  Sex: Female
  Weight: 74.46 kg

DRUGS (1)
  1. REVLIMID [Suspect]
     Active Substance: LENALIDOMIDE
     Indication: MYELODYSPLASTIC SYNDROME
     Dosage: 10 MILLIGRAM
     Route: 048
     Dates: start: 201604, end: 2016

REACTIONS (8)
  - Full blood count decreased [Unknown]
  - Insomnia [Recovered/Resolved]
  - Abasia [Unknown]
  - Platelet count decreased [Unknown]
  - Dyspnoea [Recovered/Resolved]
  - Myelodysplastic syndrome [Unknown]
  - Breast cancer [Unknown]
  - Vision blurred [Recovered/Resolved]

NARRATIVE: CASE EVENT DATE: 2016
